FAERS Safety Report 24336160 (Version 1)
Quarter: 2024Q3

REPORT INFORMATION
  Report Type: Report from Study
  Country: ID (occurrence: ID)
  Receive Date: 20240919
  Receipt Date: 20240919
  Transmission Date: 20241016
  Serious: No
  Sender: ROCHE
  Company Number: ID-ROCHE-3427349

PATIENT
  Age: 58 Year
  Sex: Male

DRUGS (15)
  1. OSELTAMIVIR [Suspect]
     Active Substance: OSELTAMIVIR
     Indication: COVID-19
     Route: 065
  2. ZINC [Concomitant]
     Active Substance: ZINC
  3. AZITROMISIN [Concomitant]
  4. VITAMIN C [Concomitant]
     Active Substance: ASCORBIC ACID
  5. HEPARIN [Concomitant]
     Active Substance: HEPARIN SODIUM
  6. LEVOFLOKSASIN [Concomitant]
  7. ALPRAZOLAM [Concomitant]
     Active Substance: ALPRAZOLAM
  8. DEXAMETHASONE [Concomitant]
     Active Substance: DEXAMETHASONE
  9. REMDESIVIR [Concomitant]
     Active Substance: REMDESIVIR
  10. REBAMIPIDE [Concomitant]
     Active Substance: REBAMIPIDE
  11. CEFTRIAXONE [Concomitant]
     Active Substance: CEFTRIAXONE\CEFTRIAXONE SODIUM
  12. OMEPRAZOLE [Concomitant]
     Active Substance: OMEPRAZOLE
  13. ONDANSETRON [Concomitant]
     Active Substance: ONDANSETRON
  14. OMEGA 3 [Concomitant]
     Active Substance: CAPSAICIN
  15. FUROSEMIDE [Concomitant]
     Active Substance: FUROSEMIDE

REACTIONS (3)
  - Off label use [Unknown]
  - Nausea [Unknown]
  - Insomnia [Unknown]
